FAERS Safety Report 8589447-X (Version None)
Quarter: 2012Q3

REPORT INFORMATION
  Report Type: 
  Country: None (occurrence: None)
  Receive Date: 20120731
  Receipt Date: 20120720
  Transmission Date: 20120928
  Serious: Yes (Hospitalization)
  Sender: FDA-Public Use
  Company Number: ACO_30942_2012

PATIENT
  Age: 56 Year
  Sex: Male

DRUGS (3)
  1. BETASERON [Suspect]
  2. AMPYRA [Suspect]
     Indication: MULTIPLE SCLEROSIS
     Dosage: 10 MG, BID
     Dates: start: 20110226, end: 20120101
  3. LYRICA [Concomitant]

REACTIONS (6)
  - DIABETIC FOOT [None]
  - RESPIRATORY FAILURE [None]
  - URINARY INCONTINENCE [None]
  - HYPERTENSION [None]
  - EYE MOVEMENT DISORDER [None]
  - UNRESPONSIVE TO STIMULI [None]
